FAERS Safety Report 23754141 (Version 1)
Quarter: 2024Q2

REPORT INFORMATION
  Report Type: Other
  Country: BG (occurrence: None)
  Receive Date: 20240417
  Receipt Date: 20240417
  Transmission Date: 20240716
  Serious: Yes (Other)
  Sender: FDA-Public Use
  Company Number: BG-Square Pharmaceuticals PLC-000003

PATIENT
  Age: 76 Year
  Sex: Male

DRUGS (4)
  1. VALSARTAN [Suspect]
     Active Substance: VALSARTAN
     Indication: Hypertension
     Dosage: 160 MG ONCE DAILY
  2. VALSARTAN AND HYDROCHLOROTHIAZIDE [Suspect]
     Active Substance: HYDROCHLOROTHIAZIDE\VALSARTAN
     Indication: Hypertension
     Dosage: 160 MG/12.5 MG ONCE IN THE MORNING
  3. BISOPROLOL FUMARATE [Suspect]
     Active Substance: BISOPROLOL FUMARATE
     Indication: Product used for unknown indication
     Dosage: HALF A TABLET TWICE DAILY
  4. ASPIRIN [Concomitant]
     Active Substance: ASPIRIN
     Indication: Postoperative care
     Dosage: 100 MG ONCE AT NIGHT

REACTIONS (1)
  - Nodular melanoma [Recovered/Resolved]
